FAERS Safety Report 8202172-X (Version None)
Quarter: 2012Q1

REPORT INFORMATION
  Report Type: 
  Country: None (occurrence: None)
  Receive Date: 20120312
  Receipt Date: 20120303
  Transmission Date: 20120608
  Serious: Yes (Hospitalization, Other)
  Sender: FDA-Public Use
  Company Number: US-BAYER-2011-059475

PATIENT
  Age: 21 Year
  Sex: Female
  Weight: 115.19 kg

DRUGS (5)
  1. XANAX [Concomitant]
     Dosage: 0.5 MG, UNK
     Route: 048
  2. YAZ [Suspect]
     Indication: MENSTRUATION IRREGULAR
     Dosage: UNK
     Dates: start: 20060101, end: 20090101
  3. SYNTHROID [Concomitant]
     Indication: THYROID DISORDER
     Dosage: 0.10 MG, QD
     Dates: start: 19980101
  4. METFORMIN HCL [Concomitant]
     Indication: POLYCYSTIC OVARIES
     Dosage: 500 MG, TID
     Dates: start: 20020101
  5. YASMIN [Suspect]
     Indication: MENSTRUATION IRREGULAR
     Dosage: UNK
     Dates: start: 20040101, end: 20060101

REACTIONS (13)
  - ABDOMINAL PAIN [None]
  - PANCREATIC DISORDER [None]
  - ALOPECIA [None]
  - MALNUTRITION [None]
  - DEPRESSION [None]
  - CHOLELITHIASIS [None]
  - GASTROINTESTINAL DISORDER [None]
  - RENAL DISORDER [None]
  - SOCIAL PHOBIA [None]
  - LIVER DISORDER [None]
  - CHOLECYSTITIS CHRONIC [None]
  - EATING DISORDER [None]
  - ANXIETY [None]
